FAERS Safety Report 5850163-6 (Version None)
Quarter: 2008Q3

REPORT INFORMATION
  Report Type: 
  Country: None (occurrence: None)
  Receive Date: 20080819
  Receipt Date: 20080815
  Transmission Date: 20090109
  Serious: No
  Sender: FDA-Public Use
  Company Number: US-BOEHRINGER INGELHEIM GMBH, GERMANY-2008-BP-12955BP

PATIENT
  Sex: Male

DRUGS (1)
  1. CATAPRES-TTS-1 [Suspect]
     Indication: TOURETTE'S DISORDER
     Route: 061
     Dates: start: 19900101

REACTIONS (4)
  - AGITATION [None]
  - DRUG EFFECT DECREASED [None]
  - INSOMNIA [None]
  - TREMOR [None]
